FAERS Safety Report 6569663-9 (Version None)
Quarter: 2010Q1

REPORT INFORMATION
  Report Type: 
  Country: None (occurrence: None)
  Receive Date: 20100204
  Receipt Date: 20100122
  Transmission Date: 20100710
  Serious: Yes (Other)
  Sender: FDA-Public Use
  Company Number: PHHY2009FR58430

PATIENT
  Sex: Female
  Weight: 58 kg

DRUGS (4)
  1. TAREG [Suspect]
     Indication: HYPERTENSION
     Dosage: 40 MG, QD
     Route: 048
  2. TAREG [Suspect]
     Dosage: 80 MG, QD
     Route: 048
     Dates: start: 20091105, end: 20091110
  3. LEVOTHYROXINE SODIUM [Concomitant]
     Indication: HYPOTHYROIDISM
     Dosage: 100 UG, UNK
  4. ALPRAZOLAM [Concomitant]
     Indication: ANXIETY
     Dosage: 0.25 MG, UNK

REACTIONS (2)
  - PHARYNGEAL OEDEMA [None]
  - URTICARIA [None]
